FAERS Safety Report 18850941 (Version 1)
Quarter: 2021Q1

REPORT INFORMATION
  Report Type: Other
  Country: GB (occurrence: GB)
  Receive Date: 20210205
  Receipt Date: 20210205
  Transmission Date: 20210420
  Serious: Yes (Hospitalization)
  Sender: FDA-Public Use
  Company Number: GB-CELLTRION INC.-2021GB001235

PATIENT

DRUGS (1)
  1. RITUXIMAB (UNKNOWN) [Suspect]
     Active Substance: RITUXIMAB
     Indication: NEPHROTIC SYNDROME
     Dosage: 1 G
     Route: 042
     Dates: start: 20200721, end: 20200804

REACTIONS (9)
  - Rash pruritic [Recovered/Resolved]
  - Arthralgia [Recovering/Resolving]
  - Hot flush [Recovered/Resolved]
  - Alopecia [Recovering/Resolving]
  - Dizziness [Recovered/Resolved]
  - Off label use [Unknown]
  - Rash erythematous [Recovered/Resolved]
  - Disease recurrence [Unknown]
  - Psoriasis [Recovering/Resolving]

NARRATIVE: CASE EVENT DATE: 20200804
